FAERS Safety Report 10062608 (Version 1)
Quarter: 2014Q2

REPORT INFORMATION
  Report Type: Spontaneous
  Country: TR (occurrence: TR)
  Receive Date: 20140407
  Receipt Date: 20140407
  Transmission Date: 20141212
  Serious: Yes (Disabling, Other)
  Sender: FDA-Public Use
  Company Number: TR-WATSON-2014-06208

PATIENT
  Age: 3 Year
  Sex: Male

DRUGS (1)
  1. METRONIDAZOLE (UNKNOWN) [Suspect]
     Indication: AMOEBIASIS
     Dosage: UNKNOWN
     Route: 048

REACTIONS (4)
  - Ataxia [Recovered/Resolved]
  - Blindness [Recovered/Resolved]
  - Vertigo [Recovered/Resolved]
  - Headache [Recovered/Resolved]
